FAERS Safety Report 8933649 (Version 1)
Quarter: 2012Q4

REPORT INFORMATION
  Report Type: 
  Country: US (occurrence: US)
  Receive Date: 20121128
  Receipt Date: 20121128
  Transmission Date: 20130627
  Serious: Yes (Other)
  Sender: FDA-Public Use
  Company Number: US-GILEAD-2012-0065136

PATIENT
  Sex: Male

DRUGS (3)
  1. LETAIRIS [Suspect]
     Indication: UNEVALUABLE EVENT
     Dosage: 10 mg, QD
     Route: 048
     Dates: start: 20080117
  2. LETAIRIS [Suspect]
     Indication: INFECTION PARASITIC
  3. LETAIRIS [Suspect]
     Indication: UNEVALUABLE EVENT

REACTIONS (2)
  - Pulmonary fibrosis [Unknown]
  - Pulmonary arterial hypertension [Unknown]
